FAERS Safety Report 6743312-9 (Version None)
Quarter: 2010Q2

REPORT INFORMATION
  Report Type: 
  Country: None (occurrence: None)
  Receive Date: 20100527
  Receipt Date: 20100519
  Transmission Date: 20101027
  Serious: Yes (Life-Threatening, Hospitalization)
  Sender: FDA-Public Use
  Company Number: US-MYLANLABS-2010S1008902

PATIENT
  Age: 71 Year
  Sex: Female

DRUGS (2)
  1. GLIPIZIDE [Suspect]
     Indication: DIABETES MELLITUS
     Route: 048
     Dates: start: 20080101, end: 20100101
  2. AVANDIA [Concomitant]
     Indication: DIABETES MELLITUS

REACTIONS (1)
  - PULMONARY THROMBOSIS [None]
